FAERS Safety Report 12975873 (Version 1)
Quarter: 2016Q4

REPORT INFORMATION
  Report Type: Spontaneous
  Country: IT (occurrence: IT)
  Receive Date: 20161125
  Receipt Date: 20161125
  Transmission Date: 20170207
  Serious: Yes (Other)
  Sender: FDA-Public Use
  Company Number: IT-ABBVIE-16P-083-1558714-00

PATIENT
  Age: 71 Year
  Sex: Female

DRUGS (2)
  1. VIEKIRAX [Suspect]
     Active Substance: OMBITASVIR\PARITAPREVIR\RITONAVIR
     Indication: CHRONIC HEPATITIS C
     Dosage: DAILY
     Route: 048
     Dates: start: 20151008
  2. EXVIERA [Suspect]
     Active Substance: DASABUVIR
     Indication: CHRONIC HEPATITIS C
     Dosage: DAILY
     Route: 048
     Dates: start: 20151008

REACTIONS (1)
  - Hypertensive crisis [Recovering/Resolving]

NARRATIVE: CASE EVENT DATE: 20151104
